FAERS Safety Report 4492044-9 (Version None)
Quarter: 2004Q4

REPORT INFORMATION
  Report Type: 
  Country: None (occurrence: None)
  Receive Date: 20041101
  Receipt Date: 20041025
  Transmission Date: 20050328
  Serious: No
  Sender: FDA-Public Use
  Company Number: A01200402094

PATIENT
  Age: 72 Year
  Sex: Male

DRUGS (3)
  1. PLAVIX [Suspect]
     Dosage: 75 MG QD
     Route: 048
     Dates: start: 20020101, end: 20040401
  2. FLECAINIDE ACETATE [Concomitant]
  3. LANSOPRAZOLE [Concomitant]

REACTIONS (1)
  - PHLEBITIS DEEP [None]
